FAERS Safety Report 8249170-8 (Version None)
Quarter: 2012Q2

REPORT INFORMATION
  Report Type: 
  Country: None (occurrence: None)
  Receive Date: 20120402
  Receipt Date: 20120326
  Transmission Date: 20120825
  Serious: No
  Sender: FDA-Public Use
  Company Number: US-PFIZER INC-2012026281

PATIENT
  Sex: Female
  Weight: 107.3 kg

DRUGS (9)
  1. NEXIUM [Concomitant]
     Dosage: UNK
  2. LORAZEPAM [Concomitant]
     Indication: INSOMNIA
     Dosage: UNK
  3. VITAMIN B-12 [Concomitant]
     Dosage: UNK
  4. CLONIDINE [Concomitant]
     Indication: BLOOD PRESSURE
     Dosage: UNK
  5. SUTENT [Suspect]
     Dosage: 50 MG, 1X/DAY
     Dates: start: 20120131
  6. ZOFRAN [Concomitant]
     Dosage: 8 MG, AT NIGHT
  7. SUTENT [Suspect]
     Indication: METASTATIC RENAL CELL CARCINOMA
     Dosage: 50 MG, DAILY
     Dates: start: 20120108, end: 20120129
  8. SUTENT [Suspect]
     Dosage: 37.5 MG, UNK
     Dates: start: 20120304
  9. SUTENT [Suspect]
     Dosage: 12.5 MG, 3X/DAY

REACTIONS (15)
  - HAIR COLOUR CHANGES [None]
  - FLATULENCE [None]
  - EYELASH DISCOLOURATION [None]
  - STOMATITIS [None]
  - PLATELET COUNT DECREASED [None]
  - GLOSSODYNIA [None]
  - DYSGEUSIA [None]
  - ORAL PAIN [None]
  - DIARRHOEA [None]
  - DECREASED APPETITE [None]
  - CONSTIPATION [None]
  - DYSPEPSIA [None]
  - FATIGUE [None]
  - WEIGHT DECREASED [None]
  - HAEMOGLOBIN DECREASED [None]
